FAERS Safety Report 12357591 (Version 1)
Quarter: 2016Q2

REPORT INFORMATION
  Report Type: Spontaneous
  Country: RU (occurrence: RU)
  Receive Date: 20160512
  Receipt Date: 20160512
  Transmission Date: 20160815
  Serious: Yes (Other)
  Sender: FDA-Public Use
  Company Number: RU-009507513-1603RUS010428

PATIENT
  Age: 42 Year
  Sex: Female

DRUGS (1)
  1. NUVARING [Suspect]
     Active Substance: ETHINYL ESTRADIOL\ETONOGESTREL
     Indication: METABOLIC DISORDER
     Dosage: UNK
     Route: 067
     Dates: start: 2015, end: 2016

REACTIONS (5)
  - Incorrect drug administration duration [Recovered/Resolved]
  - Unintended pregnancy [Recovered/Resolved]
  - Abortion missed [Recovered/Resolved]
  - Off label use [Recovered/Resolved]
  - Pregnancy with contraceptive device [Recovered/Resolved]

NARRATIVE: CASE EVENT DATE: 2015
